FAERS Safety Report 6363447-2 (Version None)
Quarter: 2009Q3

REPORT INFORMATION
  Report Type: 
  Country: None (occurrence: None)
  Receive Date: 20090919
  Receipt Date: 20090630
  Transmission Date: 20100115
  Serious: No
  Sender: FDA-Public Use
  Company Number: US-ABBOTT-09P-163-0582633-00

PATIENT
  Sex: Female
  Weight: 79.904 kg

DRUGS (8)
  1. HUMIRA [Suspect]
     Indication: RHEUMATOID ARTHRITIS
     Dates: start: 20090505
  2. HUMIRA [Suspect]
     Indication: PSORIASIS
  3. INSULIN [Concomitant]
     Indication: DRUG USE FOR UNKNOWN INDICATION
     Dosage: DAILY IN PM
  4. METFORMIN HCL [Concomitant]
     Indication: DRUG USE FOR UNKNOWN INDICATION
  5. SYNTHROID [Concomitant]
     Indication: DRUG USE FOR UNKNOWN INDICATION
  6. ACTOS [Concomitant]
     Indication: DRUG USE FOR UNKNOWN INDICATION
  7. CRESTOR [Concomitant]
     Indication: DRUG USE FOR UNKNOWN INDICATION
  8. TYLENOL (CAPLET) [Concomitant]
     Indication: DRUG USE FOR UNKNOWN INDICATION
     Dosage: AS REQUIRED

REACTIONS (3)
  - COUGH [None]
  - NASOPHARYNGITIS [None]
  - PYREXIA [None]
